FAERS Safety Report 20594226 (Version 1)
Quarter: 2022Q1

REPORT INFORMATION
  Report Type: Spontaneous
  Country: US (occurrence: US)
  Receive Date: 20220315
  Receipt Date: 20220315
  Transmission Date: 20220423
  Serious: Yes (Other)
  Sender: FDA-Public Use
  Company Number: US-TOLMAR, INC.-22US033430

PATIENT
  Sex: Male

DRUGS (3)
  1. ELIGARD [Suspect]
     Active Substance: LEUPROLIDE ACETATE
     Indication: Product used for unknown indication
     Dosage: UNK
  2. XTANDI [Suspect]
     Active Substance: ENZALUTAMIDE
     Indication: Product used for unknown indication
     Dosage: UNK
  3. XTANDI [Suspect]
     Active Substance: ENZALUTAMIDE
     Dosage: UNK
     Dates: start: 202105

REACTIONS (14)
  - Anal haemorrhage [Recovered/Resolved]
  - Ulcer haemorrhage [Recovered/Resolved]
  - Gait inability [Recovered/Resolved]
  - Gingivitis [Recovered/Resolved]
  - Herpes zoster [Recovered/Resolved]
  - Cough [Recovered/Resolved]
  - Sleep disorder [Recovered/Resolved]
  - Muscle spasms [Recovered/Resolved]
  - Abnormal dreams [Recovered/Resolved]
  - Pruritus [Recovered/Resolved]
  - Weight increased [Recovered/Resolved]
  - Constipation [Recovered/Resolved]
  - Nocturia [Recovered/Resolved]
  - Fatigue [Recovered/Resolved]
